FAERS Safety Report 16582128 (Version 1)
Quarter: 2019Q3

REPORT INFORMATION
  Report Type: Spontaneous
  Country: US (occurrence: US)
  Receive Date: 20190717
  Receipt Date: 20190717
  Transmission Date: 20191004
  Serious: No
  Sender: FDA-Public Use
  Company Number: US-SUNOVION-2019SUN002809

PATIENT
  Age: 45 Year
  Sex: Female
  Weight: 214.97 kg

DRUGS (2)
  1. TEGRETOL [Suspect]
     Active Substance: CARBAMAZEPINE
     Dosage: UNK
  2. APTIOM [Suspect]
     Active Substance: ESLICARBAZEPINE ACETATE
     Indication: TRIGEMINAL NEURALGIA
     Dosage: 800 MG, QD
     Route: 048
     Dates: end: 201906

REACTIONS (6)
  - Dizziness [Recovered/Resolved]
  - Confusional state [Recovered/Resolved]
  - Mental status changes [Recovered/Resolved]
  - Pain [Recovered/Resolved]
  - Off label use [Unknown]
  - Product dose omission [Unknown]
